FAERS Safety Report 5950868-2 (Version None)
Quarter: 2008Q4

REPORT INFORMATION
  Report Type: 
  Country: None (occurrence: None)
  Receive Date: 20081110
  Receipt Date: 20081030
  Transmission Date: 20090506
  Serious: Yes (Life-Threatening)
  Sender: FDA-Public Use
  Company Number: TCI2008A04660

PATIENT
  Age: 60 Year
  Sex: Male

DRUGS (12)
  1. LANSAP 800 (LANSOPRAZOLE, CLARITHROMYCIN, AMOXICILLIIN) (PREPARATION F [Suspect]
     Indication: HELICOBACTER INFECTION
     Dosage: 1 CARD (0.5 CARD, 2 IN 1 D), PER ORAL
     Route: 048
     Dates: start: 20080901, end: 20080907
  2. ASPIRIN [Concomitant]
  3. ALDACTONE [Concomitant]
  4. FAMOTIDINE [Concomitant]
  5. VERAPAMIL HYDROCHLORIDE [Concomitant]
  6. ARTIST (CARVEDILOL)(TABLETS) [Concomitant]
  7. LASIX [Concomitant]
  8. WARFARIN SODIUM [Concomitant]
  9. LIVALO (ITAVASTATIN CALCIUM)(TABLETS) [Concomitant]
  10. MERCAZOLE (THIAMAZOLE) [Concomitant]
  11. GLIMICRON (GLICLAZIDE)(TABLETS) [Concomitant]
  12. THYRADIN S (LEVOTHYROXINE SODIUM) (PREPARATION FOR ORAL USE(NOS)) [Concomitant]

REACTIONS (2)
  - CARDIO-RESPIRATORY ARREST [None]
  - VENTRICULAR FIBRILLATION [None]
